FAERS Safety Report 8576253 (Version 3)
Quarter: 2016Q3

REPORT INFORMATION
  Report Type: Report from Study
  Country: DE (occurrence: DE)
  Receive Date: 20120523
  Receipt Date: 20160801
  Transmission Date: 20161109
  Serious: Yes (Disabling)
  Sender: FDA-Public Use
  Company Number: DE-ROCHE-1067224

PATIENT
  Age: 60 Year
  Sex: Male
  Weight: 90 kg

DRUGS (1)
  1. TRASTUZUMAB [Suspect]
     Active Substance: TRASTUZUMAB
     Indication: GASTRIC CANCER
     Dosage: LAST DOSE:25/APR/2012
     Route: 042
     Dates: start: 20120312

REACTIONS (2)
  - Aortic aneurysm [Not Recovered/Not Resolved]
  - Bicuspid aortic valve [Not Recovered/Not Resolved]

NARRATIVE: CASE EVENT DATE: 20120508
